FAERS Safety Report 12596910 (Version 1)
Quarter: 2016Q3

REPORT INFORMATION
  Report Type: Spontaneous
  Country: DE (occurrence: DE)
  Receive Date: 20160727
  Receipt Date: 20160727
  Transmission Date: 20161109
  Serious: Yes (Other)
  Sender: FDA-Public Use
  Company Number: DE-ALKEM LABORATORIES LIMITED-DE-ALKEM-2016-00079

PATIENT
  Age: 21 Year

DRUGS (1)
  1. OLANZAPINE. [Suspect]
     Active Substance: OLANZAPINE
     Indication: SCHIZOPHRENIA
     Dosage: 20 MG, UNK
     Route: 048

REACTIONS (3)
  - Electrocardiogram ST segment elevation [Recovered/Resolved]
  - Atrioventricular block first degree [Recovered/Resolved]
  - Brugada syndrome [Recovered/Resolved]

NARRATIVE: CASE EVENT DATE: 20160502
